FAERS Safety Report 25041708 (Version 8)
Quarter: 2025Q4

REPORT INFORMATION
  Report Type: Spontaneous
  Country: US (occurrence: US)
  Receive Date: 20250305
  Receipt Date: 20251113
  Transmission Date: 20260117
  Serious: No
  Sender: BRISTOL-MYERS SQUIBB COMPANY
  Company Number: US-BRISTOL-MYERS SQUIBB COMPANY-2025-032402

PATIENT
  Age: 68 Year
  Sex: Female

DRUGS (3)
  1. POMALYST [Suspect]
     Active Substance: POMALIDOMIDE
     Indication: Plasma cell myeloma
     Route: 048
  2. POMALYST [Suspect]
     Active Substance: POMALIDOMIDE
     Route: 048
  3. POMALYST [Suspect]
     Active Substance: POMALIDOMIDE
     Dosage: STRENGTH: 2MG
     Route: 048

REACTIONS (13)
  - COVID-19 [Unknown]
  - Memory impairment [Unknown]
  - Inappropriate schedule of product administration [Unknown]
  - Product dose omission issue [Unknown]
  - Hypoaesthesia [Unknown]
  - Pulmonary mass [Unknown]
  - Oedema peripheral [Unknown]
  - Peripheral swelling [Not Recovered/Not Resolved]
  - Full blood count decreased [Unknown]
  - Blood calcium increased [Unknown]
  - Joint swelling [Unknown]
  - Diarrhoea [Unknown]
  - Headache [Unknown]
